FAERS Safety Report 18859861 (Version 1)
Quarter: 2021Q1

REPORT INFORMATION
  Report Type: Spontaneous
  Country: US (occurrence: US)
  Receive Date: 20210208
  Receipt Date: 20210208
  Transmission Date: 20210420
  Serious: Yes (Other)
  Sender: FDA-Public Use
  Company Number: None

PATIENT
  Age: 39 Year
  Sex: Female
  Weight: 109.35 kg

DRUGS (8)
  1. VIT D [Concomitant]
     Active Substance: VITAMIN D NOS
  2. IRON [Concomitant]
     Active Substance: IRON
  3. METFORMIN [Concomitant]
     Active Substance: METFORMIN HYDROCHLORIDE
  4. RITALIN [Concomitant]
     Active Substance: METHYLPHENIDATE HYDROCHLORIDE
  5. VITAMIN B12 [Concomitant]
     Active Substance: CYANOCOBALAMIN
  6. CPAP [Concomitant]
     Active Substance: DEVICE
  7. ZINC. [Concomitant]
     Active Substance: ZINC
  8. NORDITROPIN [Suspect]
     Active Substance: SOMATROPIN
     Indication: GROWTH HORMONE DEFICIENCY
     Dosage: ?          QUANTITY:1 INJECTION(S);?
     Route: 058
     Dates: start: 20210127

REACTIONS (1)
  - Hypertension [None]

NARRATIVE: CASE EVENT DATE: 20210202
